FAERS Safety Report 5976059-7 (Version None)
Quarter: 2008Q4

REPORT INFORMATION
  Report Type: 
  Country: None (occurrence: None)
  Receive Date: 20081202
  Receipt Date: 20081126
  Transmission Date: 20090506
  Serious: Yes (Death)
  Sender: FDA-Public Use
  Company Number: US-ROCHE-599393

PATIENT
  Sex: Female
  Weight: 61.2 kg

DRUGS (5)
  1. CAPECITABINE [Suspect]
     Dosage: DOSE: 1500 MG IN AM AND 1500 MG IN PM
     Route: 048
     Dates: start: 20081009
  2. DECADRON [Concomitant]
  3. DIGOXIN [Concomitant]
  4. PANCREASE [Concomitant]
  5. PROTONIX [Concomitant]

REACTIONS (1)
  - DISEASE PROGRESSION [None]
